FAERS Safety Report 21195245 (Version 1)
Quarter: 2022Q3

REPORT INFORMATION
  Report Type: Spontaneous
  Country: US (occurrence: None)
  Receive Date: 20220809
  Receipt Date: 20220809
  Transmission Date: 20221027
  Serious: Yes (Death)
  Sender: FDA-Public Use
  Company Number: None

PATIENT
  Age: 94 Year
  Sex: Female

DRUGS (17)
  1. BEXAROTENE [Suspect]
     Active Substance: BEXAROTENE
     Indication: Cutaneous T-cell lymphoma
     Dosage: OTHER FREQUENCY : EVERY24HOUR;?
     Route: 048
  2. CITALOPRAM [Concomitant]
     Active Substance: CITALOPRAM HYDROBROMIDE
  3. LEVOTHYROXINE [Concomitant]
  4. HYDROXYZINE [Concomitant]
  5. HYDROCHLOROTHIAZIDE [Concomitant]
     Active Substance: HYDROCHLOROTHIAZIDE
  6. ATORVASTATIN [Concomitant]
     Active Substance: ATORVASTATIN
  7. ZINC [Concomitant]
     Active Substance: ZINC
  8. PREGABALIN [Concomitant]
     Active Substance: PREGABALIN
  9. PANTOPRAZOLE [Concomitant]
  10. MIRTAZAPINE [Concomitant]
  11. FLONASE [Concomitant]
  12. MEMANTINE [Concomitant]
     Active Substance: MEMANTINE
  13. FENOFIBRATE [Concomitant]
  14. FENOFIBRATE [Concomitant]
  15. DONEPEZIL [Concomitant]
     Active Substance: DONEPEZIL
  16. TRIAMCINOLONE CREAM [Concomitant]
  17. VITAMIN D [Concomitant]

REACTIONS (1)
  - Death [None]

NARRATIVE: CASE EVENT DATE: 20220706
